FAERS Safety Report 4946833-4 (Version None)
Quarter: 2006Q1

REPORT INFORMATION
  Report Type: 
  Country: None (occurrence: None)
  Receive Date: 20060201
  Receipt Date: 20051208
  Transmission Date: 20060701
  Serious: No
  Sender: FDA-Public Use
  Company Number: 2005PV005583

PATIENT
  Age: 74 Year
  Sex: Male
  Weight: 80.2867 kg

DRUGS (8)
  1. BYETTA [Suspect]
     Indication: DIABETES MELLITUS NON-INSULIN-DEPENDENT
     Dosage: 10 MCG;BID;SC    :  5 MCG, BID;SC
     Route: 058
     Dates: start: 20050901, end: 20051116
  2. BYETTA [Suspect]
     Indication: DIABETES MELLITUS NON-INSULIN-DEPENDENT
     Dosage: 10 MCG;BID;SC    :  5 MCG, BID;SC
     Route: 058
     Dates: start: 20051117
  3. STARLIX [Concomitant]
  4. METFORMIN [Concomitant]
  5. AVANDIA [Concomitant]
  6. VYTORIN [Concomitant]
  7. FLOMAX [Concomitant]
  8. ASPIRIN [Concomitant]

REACTIONS (4)
  - ABDOMINAL DISCOMFORT [None]
  - CONSTIPATION [None]
  - DECREASED APPETITE [None]
  - NAUSEA [None]
